FAERS Safety Report 12906875 (Version 1)
Quarter: 2016Q4

REPORT INFORMATION
  Report Type: Spontaneous
  Country: US (occurrence: US)
  Receive Date: 20161101
  Receipt Date: 20161101
  Transmission Date: 20170207
  Serious: Yes (Hospitalization)
  Sender: FDA-Public Use
  Company Number: None

PATIENT
  Age: 70 Year
  Sex: Male
  Weight: 81 kg

DRUGS (1)
  1. LISINOPRIL. [Suspect]
     Active Substance: LISINOPRIL
     Indication: HYPERTENSION
     Route: 048
     Dates: start: 20161028, end: 20161031

REACTIONS (5)
  - Blood pressure increased [None]
  - Wrong patient received medication [None]
  - Drug ineffective [None]
  - Self-medication [None]
  - Prescription drug used without a prescription [None]

NARRATIVE: CASE EVENT DATE: 20161031
